FAERS Safety Report 25160076 (Version 10)
Quarter: 2025Q2

REPORT INFORMATION
  Report Type: Report from Study
  Country: CA (occurrence: CA)
  Receive Date: 20250404
  Receipt Date: 20250623
  Transmission Date: 20250717
  Serious: Yes (Hospitalization, Other)
  Sender: CSL BEHRING
  Company Number: CA-BEH-2025199109

PATIENT
  Age: 64 Year
  Sex: Male
  Weight: 75 kg

DRUGS (14)
  1. HIZENTRA [Suspect]
     Active Substance: HUMAN IMMUNOGLOBULIN G
     Indication: Secondary immunodeficiency
     Dosage: UNK, QW
     Route: 058
     Dates: start: 20250228
  2. HIZENTRA [Suspect]
     Active Substance: HUMAN IMMUNOGLOBULIN G
     Dosage: 8 G, QW
     Route: 058
     Dates: start: 20250228
  3. HIZENTRA [Suspect]
     Active Substance: HUMAN IMMUNOGLOBULIN G
     Route: 058
     Dates: start: 20250328
  4. HIZENTRA [Suspect]
     Active Substance: HUMAN IMMUNOGLOBULIN G
     Route: 058
     Dates: start: 20250411
  5. HIZENTRA [Suspect]
     Active Substance: HUMAN IMMUNOGLOBULIN G
     Route: 058
     Dates: start: 20250417
  6. HIZENTRA [Suspect]
     Active Substance: HUMAN IMMUNOGLOBULIN G
     Route: 058
     Dates: start: 20250509
  7. HIZENTRA [Suspect]
     Active Substance: HUMAN IMMUNOGLOBULIN G
     Route: 058
     Dates: start: 20250516
  8. HIZENTRA [Suspect]
     Active Substance: HUMAN IMMUNOGLOBULIN G
     Dosage: 8 G, QW
     Route: 058
     Dates: start: 20250228
  9. ATORVASTATIN [Concomitant]
     Active Substance: ATORVASTATIN
     Dosage: 40 MG, QD
     Route: 048
  10. ASPIRIN [Concomitant]
     Active Substance: ASPIRIN
     Dosage: 80 MG, QD
     Route: 048
  11. CLOPIDOGREL [Concomitant]
     Active Substance: CLOPIDOGREL BISULFATE
     Dosage: 75 MG, QD
     Route: 048
  12. BISOPROLOL [Concomitant]
     Active Substance: BISOPROLOL
     Dosage: 1.25 MG, QD
     Route: 048
  13. FUROSEMIDE [Concomitant]
     Active Substance: FUROSEMIDE
     Dosage: 20 MG, QD
     Route: 048
  14. VALSARTAN [Concomitant]
     Active Substance: VALSARTAN
     Dosage: 20 MG, BID
     Route: 048

REACTIONS (20)
  - Myocardial infarction [Unknown]
  - Brain neoplasm [Unknown]
  - Brain neoplasm [Unknown]
  - Unevaluable event [Recovered/Resolved]
  - Decreased appetite [Recovered/Resolved]
  - Taste disorder [Recovered/Resolved]
  - Parosmia [Recovered/Resolved]
  - Insomnia [Unknown]
  - Hyperhidrosis [Unknown]
  - Pain [Unknown]
  - Injection site bruising [Unknown]
  - Infusion site swelling [Unknown]
  - Tremor [Unknown]
  - Infusion related reaction [Unknown]
  - Dehydration [Unknown]
  - Fatigue [Unknown]
  - Tremor [Unknown]
  - Fatigue [Unknown]
  - Fatigue [Unknown]
  - Treatment noncompliance [Unknown]

NARRATIVE: CASE EVENT DATE: 20250301
